FAERS Safety Report 9813951 (Version 1)
Quarter: 2014Q1

REPORT INFORMATION
  Report Type: Report from Study
  Country: US (occurrence: US)
  Receive Date: 20140113
  Receipt Date: 20140113
  Transmission Date: 20141002
  Serious: Yes (Other)
  Sender: FDA-Public Use
  Company Number: US-EXELIXIS-XL18413003876

PATIENT
  Age: 17 Year
  Sex: 0

DRUGS (1)
  1. XL184 [Suspect]
     Indication: NEOPLASM
     Dosage: 55 MG/M2, QD
     Route: 048
     Dates: start: 20130520, end: 20131008

REACTIONS (3)
  - Skin ulcer [Unknown]
  - Dyspnoea [Unknown]
  - Decreased appetite [Unknown]
